FAERS Safety Report 5512806-6 (Version None)
Quarter: 2007Q4

REPORT INFORMATION
  Report Type: 
  Country: None (occurrence: None)
  Receive Date: 20071112
  Receipt Date: 20071030
  Transmission Date: 20080405
  Serious: Yes (Other)
  Sender: FDA-Public Use
  Company Number: US-BAYER-200713559BCC

PATIENT
  Age: 20 Year
  Sex: Female
  Weight: 45 kg

DRUGS (1)
  1. ALKA SELTZER EFFERVESCENT PLUS NIGHT TIME COLD [Suspect]
     Indication: NASOPHARYNGITIS
     Route: 048
     Dates: start: 20071027

REACTIONS (13)
  - BLOOD PRESSURE INCREASED [None]
  - CHEST PAIN [None]
  - CONFUSIONAL STATE [None]
  - CRYING [None]
  - DIZZINESS [None]
  - HALLUCINATION, VISUAL [None]
  - HYPERSENSITIVITY [None]
  - LIP SWELLING [None]
  - PAIN IN EXTREMITY [None]
  - SENSATION OF HEAVINESS [None]
  - STARING [None]
  - SWELLING FACE [None]
  - VEIN PAIN [None]
